FAERS Safety Report 10239797 (Version 3)
Quarter: 2016Q1

REPORT INFORMATION
  Report Type: Report from Study
  Country: US (occurrence: US)
  Receive Date: 20140616
  Receipt Date: 20160222
  Transmission Date: 20160525
  Serious: Yes (Life-Threatening, Other)
  Sender: FDA-Public Use
  Company Number: US-ROCHE-1387817

PATIENT
  Age: 57 Year
  Sex: Male
  Weight: 125 kg

DRUGS (13)
  1. PEGASYS [Suspect]
     Active Substance: PEGINTERFERON ALFA-2A
     Indication: HEPATITIS C
     Route: 058
     Dates: start: 20140330
  2. HCTZ [Concomitant]
     Active Substance: HYDROCHLOROTHIAZIDE
     Route: 048
     Dates: start: 20140210
  3. COPEGUS [Suspect]
     Active Substance: RIBAVIRIN
     Route: 065
     Dates: start: 20140330, end: 201404
  4. TRIAZOLAM. [Concomitant]
     Active Substance: TRIAZOLAM
     Dosage: TRIAZOLAM/HALCYON
     Route: 065
  5. COPEGUS [Suspect]
     Active Substance: RIBAVIRIN
     Route: 065
     Dates: start: 201404
  6. COPEGUS [Suspect]
     Active Substance: RIBAVIRIN
     Route: 065
     Dates: start: 20140415
  7. BIOTIN [Concomitant]
     Active Substance: BIOTIN
     Route: 048
     Dates: start: 20140210
  8. L-ARGININE [Concomitant]
     Active Substance: ARGININE
     Indication: HAEMOGLOBIN
     Route: 048
     Dates: start: 20140210
  9. COPEGUS [Suspect]
     Active Substance: RIBAVIRIN
     Indication: HEPATITIS C
     Dosage: 200 MG 3 TABLETS IN MORNING AND 3 TABLETS IN EVENING.
     Route: 048
  10. COPEGUS [Suspect]
     Active Substance: RIBAVIRIN
     Dosage: 200 MG, 3 TABLETS A DAY
     Route: 065
  11. COPEGUS [Suspect]
     Active Substance: RIBAVIRIN
     Route: 065
     Dates: start: 20140415
  12. SOVALDI [Suspect]
     Active Substance: SOFOSBUVIR
     Indication: HEPATITIS C
     Route: 048
     Dates: start: 20140330
  13. PEGASYS [Suspect]
     Active Substance: PEGINTERFERON ALFA-2A
     Dosage: FOR 12 WEEKS
     Route: 058
     Dates: start: 201404

REACTIONS (31)
  - Nausea [Unknown]
  - Rash [Unknown]
  - Dizziness [Not Recovered/Not Resolved]
  - Nervousness [Unknown]
  - Gait disturbance [Unknown]
  - Balance disorder [Unknown]
  - Suicidal ideation [Recovering/Resolving]
  - Chest pain [Recovered/Resolved]
  - Pruritus [Unknown]
  - Blood pressure increased [Unknown]
  - Headache [Unknown]
  - Chest discomfort [Unknown]
  - Insomnia [Unknown]
  - Diarrhoea [Unknown]
  - White blood cell count decreased [Unknown]
  - Dyspnoea exertional [Not Recovered/Not Resolved]
  - Hallucination [Unknown]
  - Fall [Unknown]
  - Hypoxia [Unknown]
  - Fatigue [Recovering/Resolving]
  - Asthenia [Recovering/Resolving]
  - Tremor [Unknown]
  - Pyrexia [Unknown]
  - Restlessness [Not Recovered/Not Resolved]
  - Productive cough [Unknown]
  - Sputum discoloured [Unknown]
  - Malaise [Unknown]
  - Haemoglobin decreased [Recovering/Resolving]
  - Irritability [Not Recovered/Not Resolved]
  - Decreased appetite [Unknown]
  - Chromaturia [Unknown]

NARRATIVE: CASE EVENT DATE: 20140330
